FAERS Safety Report 7714916-1 (Version None)
Quarter: 2011Q3

REPORT INFORMATION
  Report Type: 
  Country: None (occurrence: None)
  Receive Date: 20110829
  Receipt Date: 20110823
  Transmission Date: 20111222
  Serious: Yes (Hospitalization)
  Sender: FDA-Public Use
  Company Number: FR-SANOFI-AVENTIS-2011SA053758

PATIENT
  Age: 83 Year
  Sex: Male

DRUGS (10)
  1. PRAVASTATIN [Concomitant]
  2. ASPIRIN [Concomitant]
  3. BISOPROLOL FUMARATE [Concomitant]
  4. FUROSEMIDE [Suspect]
     Route: 048
     Dates: end: 20110711
  5. GLUCOPHAGE [Concomitant]
  6. SPIRIVA [Concomitant]
  7. PANTOPRAZOLE [Suspect]
     Route: 048
     Dates: end: 20110706
  8. PRAZEPAM [Concomitant]
  9. SINTROM [Concomitant]
  10. RAMIPRIL [Concomitant]

REACTIONS (1)
  - INAPPROPRIATE ANTIDIURETIC HORMONE SECRETION [None]
